FAERS Safety Report 6488417-5 (Version None)
Quarter: 2009Q4

REPORT INFORMATION
  Report Type: 
  Country: None (occurrence: None)
  Receive Date: 20091210
  Receipt Date: 20090902
  Transmission Date: 20100525
  Serious: No
  Sender: FDA-Public Use
  Company Number: US-AMGEN-KDL363113

PATIENT
  Sex: Female

DRUGS (7)
  1. ENBREL [Suspect]
     Indication: SPONDYLOARTHROPATHY
     Route: 058
     Dates: start: 20090814, end: 20090902
  2. NAPROSYN [Concomitant]
  3. TOPROL-XL [Concomitant]
     Dates: start: 20070101
  4. LEVOTHROID [Concomitant]
     Dates: start: 19990101
  5. ENTOCORT EC [Concomitant]
     Dates: start: 20080101
  6. ALENDRONATE SODIUM [Concomitant]
     Dates: start: 20090607
  7. VITAMIN B-12 [Concomitant]

REACTIONS (10)
  - CROHN'S DISEASE [None]
  - INJECTION SITE ERYTHEMA [None]
  - INJECTION SITE HAEMATOMA [None]
  - INJECTION SITE REACTION [None]
  - INJECTION SITE WARMTH [None]
  - JOINT SWELLING [None]
  - OEDEMA PERIPHERAL [None]
  - RASH PRURITIC [None]
  - ROSACEA [None]
  - URTICARIA [None]
